FAERS Safety Report 4372970-1 (Version None)
Quarter: 2004Q2

REPORT INFORMATION
  Report Type: 
  Country: None (occurrence: None)
  Receive Date: 20040603
  Receipt Date: 20040519
  Transmission Date: 20050107
  Serious: Yes (Hospitalization)
  Sender: FDA-Public Use
  Company Number: F01200301257

PATIENT
  Age: 60 Year
  Sex: Male

DRUGS (5)
  1. OXALIPLATIN - SOLUTION - 85 MG/M2 [Suspect]
     Indication: COLORECTAL CANCER METASTATIC
     Dosage: 85 MG/M2 Q2W INTRAVENOUS NOS
     Route: 042
     Dates: start: 20031018, end: 20031018
  2. CAPECITABINE - TABLET - 1000 MG/M2 [Suspect]
     Dosage: 1000 MG/M2 TWICE A DAY FROM D1 TO D5 AND D8 TO D13, ORAL
     Route: 048
     Dates: start: 20031018, end: 20031018
  3. BEVACIZUMAB - SOLUTION - 10 MG/M2 [Suspect]
     Dosage: 10 MG/M2 Q2W INTRAVENOUS NOS
     Route: 042
     Dates: start: 20031018, end: 20031018
  4. IMODIUM (LOPERAMIDE HCL) [Concomitant]
  5. HERBS (HERBAL EXTRACTS) [Concomitant]

REACTIONS (5)
  - BLOOD CREATININE INCREASED [None]
  - CLOSTRIDIUM COLITIS [None]
  - ENTERITIS [None]
  - HYPOVOLAEMIA [None]
  - ORTHOSTATIC HYPOTENSION [None]
